FAERS Safety Report 9539978 (Version 1)
Quarter: 2013Q3

REPORT INFORMATION
  Report Type: Spontaneous
  Country: FR (occurrence: FR)
  Receive Date: 20130920
  Receipt Date: 20130920
  Transmission Date: 20140515
  Serious: Yes (Hospitalization)
  Sender: FDA-Public Use
  Company Number: FR-ROCHE-1277858

PATIENT
  Age: 80 Year
  Sex: Male

DRUGS (12)
  1. MABTHERA [Suspect]
     Indication: AUTOIMMUNE HAEMOLYTIC ANAEMIA
     Dosage: CYCLICAL
     Route: 042
     Dates: start: 20130315, end: 20130329
  2. PREVISCAN (FRANCE) [Concomitant]
  3. CORTANCYL [Concomitant]
  4. ORACILLINE [Concomitant]
  5. LEDERFOLINE [Concomitant]
  6. CACIT D3 [Concomitant]
  7. UVEDOSE [Concomitant]
  8. ADENURIC [Concomitant]
  9. MOPRAL (FRANCE) [Concomitant]
  10. NOVORAPID [Concomitant]
  11. LEVEMIR [Concomitant]
  12. PREVENAR [Concomitant]
     Route: 065
     Dates: start: 20130223

REACTIONS (1)
  - Lung disorder [Recovering/Resolving]
